FAERS Safety Report 9150465 (Version 1)
Quarter: 2013Q1

REPORT INFORMATION
  Report Type: Spontaneous
  Country: RU (occurrence: RU)
  Receive Date: 20130308
  Receipt Date: 20130308
  Transmission Date: 20140127
  Serious: Yes (Other)
  Sender: FDA-Public Use
  Company Number: RU-ASTRAZENECA-2013SE14139

PATIENT
  Age: 47 Year
  Sex: Female

DRUGS (2)
  1. BETALOC ZOK [Suspect]
     Indication: HYPERTENSION
     Route: 048
     Dates: start: 201210, end: 201301
  2. BETALOC ZOK [Suspect]
     Indication: TACHYCARDIA
     Route: 048
     Dates: start: 201210, end: 201301

REACTIONS (1)
  - Bronchial obstruction [Recovered/Resolved]
